FAERS Safety Report 9034498 (Version 1)
Quarter: 2013Q1

REPORT INFORMATION
  Report Type: Spontaneous
  Country: US (occurrence: None)
  Receive Date: 20130116
  Receipt Date: 20130116
  Transmission Date: 20140127
  Serious: No
  Sender: FDA-Public Use
  Company Number: None

PATIENT
  Age: 77 Year
  Sex: Male
  Weight: 95.26 kg

DRUGS (1)
  1. AMLODIPINE BESYLATE [Suspect]
     Dates: start: 201210, end: 201212

REACTIONS (1)
  - Atrial fibrillation [None]
